FAERS Safety Report 9183614 (Version 1)
Quarter: 2012Q4

REPORT INFORMATION
  Report Type: 
  Country: US (occurrence: US)
  Receive Date: 20121101
  Receipt Date: 20121101
  Transmission Date: 20130627
  Serious: No
  Sender: FDA-Public Use
  Company Number: US-ASTRAZENECA-2012SE81709

PATIENT
  Sex: Male

DRUGS (3)
  1. CRESTOR [Suspect]
     Route: 048
     Dates: start: 201204, end: 20121003
  2. DIAVAN [Concomitant]
  3. AMLODIPINE [Concomitant]

REACTIONS (3)
  - Back pain [Recovered/Resolved]
  - Joint stiffness [Recovered/Resolved]
  - Mobility decreased [Unknown]
